FAERS Safety Report 6071102-1 (Version None)
Quarter: 2009Q1

REPORT INFORMATION
  Report Type: 
  Country: None (occurrence: None)
  Receive Date: 20090209
  Receipt Date: 20090127
  Transmission Date: 20090719
  Serious: Yes (Hospitalization, Other)
  Sender: FDA-Public Use
  Company Number: DE-ABBOTT-07P-062-0357840-00

PATIENT
  Age: 64 Year
  Sex: Female

DRUGS (7)
  1. HUMIRA [Suspect]
     Indication: DRUG USE FOR UNKNOWN INDICATION
     Dates: start: 20050201, end: 20050501
  2. D-PENICILLAMINE [Suspect]
     Indication: DRUG USE FOR UNKNOWN INDICATION
  3. D-PENICILLAMINE [Suspect]
  4. ETANERCEPT [Suspect]
     Indication: DRUG USE FOR UNKNOWN INDICATION
     Dates: start: 20040801, end: 20041201
  5. METHOTREXATE [Concomitant]
     Indication: DRUG USE FOR UNKNOWN INDICATION
     Dates: start: 20040801, end: 20041201
  6. METHOTREXATE [Concomitant]
  7. METHOTREXATE [Concomitant]

REACTIONS (7)
  - BREAST CANCER [None]
  - BREAST CANCER METASTATIC [None]
  - GENERAL PHYSICAL HEALTH DETERIORATION [None]
  - IMPAIRED HEALING [None]
  - METASTASES TO LIVER [None]
  - NEOPLASM PROGRESSION [None]
  - STAPHYLOCOCCAL INFECTION [None]
